FAERS Safety Report 16772968 (Version 4)
Quarter: 2020Q1

REPORT INFORMATION
  Report Type: Report from Study
  Country: US (occurrence: US)
  Receive Date: 20190904
  Receipt Date: 20200203
  Transmission Date: 20200409
  Serious: Yes (Death)
  Sender: FDA-Public Use
  Company Number: PHEH2019US036310

PATIENT
  Age: 56 Year
  Sex: Male

DRUGS (2)
  1. COSENTYX [Suspect]
     Active Substance: SECUKINUMAB
     Indication: PSORIASIS
     Dosage: 300 MG, QMO
     Route: 058
     Dates: start: 20190706
  2. COSENTYX [Suspect]
     Active Substance: SECUKINUMAB
     Dosage: 300 MG, WEEKS 0, 1, 2, 3, AND 4. THEN ONCE EVERY 4 WEEKS THEREAFTER
     Route: 058
     Dates: start: 20190717

REACTIONS (2)
  - Nausea [Unknown]
  - Death [Fatal]

NARRATIVE: CASE EVENT DATE: 20191203
